FAERS Safety Report 9838127 (Version 1)
Quarter: 2014Q1

REPORT INFORMATION
  Report Type: Spontaneous
  Country: DE (occurrence: DE)
  Receive Date: 20140123
  Receipt Date: 20140123
  Transmission Date: 20141002
  Serious: Yes (Other)
  Sender: FDA-Public Use
  Company Number: DE-UCBSA-110277

PATIENT
  Age: 12 Year
  Sex: Female
  Weight: 39 kg

DRUGS (2)
  1. EQUASYM RETARD [Suspect]
     Indication: ATTENTION DEFICIT/HYPERACTIVITY DISORDER
     Dosage: 10-15MG, UNKNOWN FREQUENCY
     Route: 048
     Dates: end: 201309
  2. EQUASYM RETARD [Suspect]
     Indication: ATTENTION DEFICIT/HYPERACTIVITY DISORDER
     Dosage: 20MG IN THE MORNING AND 10MG IN THE AFTERNOON
     Route: 048
     Dates: start: 201309, end: 20131209

REACTIONS (3)
  - Tic [Recovering/Resolving]
  - Muscle twitching [Recovering/Resolving]
  - Inappropriate schedule of drug administration [Recovered/Resolved]
